FAERS Safety Report 4313736-8 (Version None)
Quarter: 2004Q1

REPORT INFORMATION
  Report Type: 
  Country: None (occurrence: None)
  Receive Date: 20040305
  Receipt Date: 20040227
  Transmission Date: 20041129
  Serious: Yes (Death)
  Sender: FDA-Public Use
  Company Number: 163-20785-04010448

PATIENT
  Age: 25 Year
  Sex: Male

DRUGS (5)
  1. THALOMID [Suspect]
     Indication: METASTASES TO BONE
     Dosage: 300 MG, QHS, ORAL
     Route: 048
     Dates: start: 20030827, end: 20040101
  2. THALOMID [Suspect]
     Indication: METASTASES TO CENTRAL NERVOUS SYSTEM
     Dosage: 300 MG, QHS, ORAL
     Route: 048
     Dates: start: 20030827, end: 20040101
  3. THALOMID [Suspect]
     Indication: METASTASES TO LIVER
     Dosage: 300 MG, QHS, ORAL
     Route: 048
     Dates: start: 20030827, end: 20040101
  4. THALOMID [Suspect]
     Indication: METASTASES TO LUNG
     Dosage: 300 MG, QHS, ORAL
     Route: 048
     Dates: start: 20030827, end: 20040101
  5. THALOMID [Suspect]
     Indication: METASTATIC MALIGNANT MELANOMA
     Dosage: 300 MG, QHS, ORAL
     Route: 048
     Dates: start: 20030827, end: 20040101

REACTIONS (1)
  - DEATH [None]
